FAERS Safety Report 7575971-5 (Version None)
Quarter: 2011Q2

REPORT INFORMATION
  Report Type: 
  Country: None (occurrence: None)
  Receive Date: 20110628
  Receipt Date: 20091009
  Transmission Date: 20111010
  Serious: Yes (Death, Other)
  Sender: FDA-Public Use
  Company Number: US-BAYER-201042026NA

PATIENT
  Age: 59 Year
  Sex: Male

DRUGS (10)
  1. ATIVAN [Concomitant]
     Dosage: 4 MG, UNK
     Route: 042
     Dates: start: 20000126
  2. TRASYLOL [Suspect]
     Indication: TRANSMYOCARDIAL REVASCULARISATION
     Dosage: 1ML TEST DOSE
     Route: 042
     Dates: start: 20000126, end: 20000126
  3. LASIX [Concomitant]
     Dosage: 80 MG, ONCE, LONGTERM USE
     Route: 048
  4. CAPTOPRIL [Concomitant]
     Dosage: 25 MG, TID
     Route: 048
  5. LANOXIN [Concomitant]
     Dosage: 0.125 MG, ONCE, LONG TERM USE
     Route: 048
  6. CARDURA [Concomitant]
  7. GLUCOTROL [Concomitant]
  8. SOLU-MEDROL [Concomitant]
     Dosage: 1 G, UNK
     Route: 042
     Dates: start: 20000126
  9. INSULIN [Concomitant]
     Dosage: AS NEEDED
     Route: 058
  10. ANCEF [Concomitant]
     Dosage: 1.5 MG, UNK
     Route: 042
     Dates: start: 20000126

REACTIONS (15)
  - ANXIETY [None]
  - STRESS [None]
  - UNEVALUABLE EVENT [None]
  - INJURY [None]
  - CARDIAC DISORDER [None]
  - POST PROCEDURAL INFECTION [None]
  - MULTI-ORGAN FAILURE [None]
  - RENAL IMPAIRMENT [None]
  - RENAL INJURY [None]
  - RENAL FAILURE [None]
  - EMOTIONAL DISTRESS [None]
  - PAIN [None]
  - ACUTE MYOCARDIAL INFARCTION [None]
  - DIABETES MELLITUS [None]
  - FEAR [None]
